FAERS Safety Report 21281257 (Version 1)
Quarter: 2022Q3

REPORT INFORMATION
  Report Type: Spontaneous
  Country: US (occurrence: US)
  Receive Date: 20220901
  Receipt Date: 20220901
  Transmission Date: 20221027
  Serious: No
  Sender: FDA-Public Use
  Company Number: US-BEH-2022149054

PATIENT
  Sex: Female
  Weight: 43.084 kg

DRUGS (2)
  1. HIZENTRA [Suspect]
     Active Substance: HUMAN IMMUNOGLOBULIN G
     Indication: Immunodeficiency common variable
     Dosage: UNK
     Route: 065
     Dates: start: 2019
  2. HIZENTRA [Suspect]
     Active Substance: HUMAN IMMUNOGLOBULIN G
     Dosage: 5 GRAM, QW
     Route: 058
     Dates: start: 202101

REACTIONS (5)
  - Alopecia [Unknown]
  - Pruritus [Recovered/Resolved]
  - Infusion site swelling [Recovered/Resolved]
  - Headache [Recovered/Resolved]
  - Weight decreased [Unknown]
